FAERS Safety Report 9648869 (Version 1)
Quarter: 2013Q4

REPORT INFORMATION
  Report Type: Spontaneous
  Country: US (occurrence: None)
  Receive Date: 20131025
  Receipt Date: 20131025
  Transmission Date: 20140711
  Serious: Yes (Disabling)
  Sender: FDA-Public Use
  Company Number: None

PATIENT
  Age: 37 Year
  Sex: Female
  Weight: 58.97 kg

DRUGS (1)
  1. CIPROFLOXIN [Suspect]
     Indication: URINARY TRACT INFECTION
     Route: 048
     Dates: start: 20120717, end: 20120718

REACTIONS (16)
  - Alopecia [None]
  - Arthralgia [None]
  - Muscle atrophy [None]
  - Weight decreased [None]
  - Muscle spasms [None]
  - Fatigue [None]
  - Lactic acidosis [None]
  - Skin mass [None]
  - Hypoaesthesia [None]
  - Muscle twitching [None]
  - Food allergy [None]
  - Ear disorder [None]
  - Palpitations [None]
  - Nerve compression [None]
  - Decreased appetite [None]
  - Headache [None]
